FAERS Safety Report 6335634-0 (Version None)
Quarter: 2009Q3

REPORT INFORMATION
  Report Type: 
  Country: None (occurrence: None)
  Receive Date: 20090831
  Receipt Date: 20090820
  Transmission Date: 20100115
  Serious: Yes (Life-Threatening, Hospitalization)
  Sender: FDA-Public Use
  Company Number: JP-GILEAD-2009-0023419

PATIENT
  Sex: Male

DRUGS (10)
  1. TRUVADA [Suspect]
     Indication: HIV INFECTION
     Route: 048
     Dates: start: 20080430
  2. ETRAVIRINE [Suspect]
     Indication: HIV INFECTION
     Route: 048
     Dates: start: 20090418, end: 20090426
  3. PREZISTA [Concomitant]
     Indication: HIV INFECTION
     Dates: start: 20090418, end: 20090426
  4. NORVIR [Concomitant]
     Indication: HIV INFECTION
     Dates: start: 20090418, end: 20090426
  5. NORVIR [Concomitant]
     Dates: start: 20080430, end: 20090417
  6. AMOXAN [Concomitant]
     Dates: start: 20090415
  7. DEPAS [Concomitant]
     Dates: start: 20090415
  8. DOGMATYL [Concomitant]
     Dates: start: 20090415
  9. FLAGYL [Concomitant]
     Dates: start: 20090415, end: 20090510
  10. REYATAZ [Concomitant]
     Indication: HIV INFECTION
     Dates: end: 20090418

REACTIONS (2)
  - DRUG RESISTANCE [None]
  - STEVENS-JOHNSON SYNDROME [None]
